FAERS Safety Report 7954355-1 (Version None)
Quarter: 2011Q4

REPORT INFORMATION
  Report Type: 
  Country: None (occurrence: None)
  Receive Date: 20111114
  Receipt Date: 20111115
  Transmission Date: 20120403
  Serious: Yes (Life-Threatening, Hospitalization, Disabling, Other)
  Sender: FDA-Public Use
  Company Number: 2011029555

PATIENT
  Age: 61 Year
  Sex: Female

DRUGS (11)
  1. AMLODIPINE [Concomitant]
  2. PRIVIGEN [Suspect]
  3. BENDROFLUMETHIAZID E (BENDROFLUMETHIAZIDE) [Concomitant]
  4. CYCLIZINE(CYCLIZINE) [Concomitant]
  5. PYRIDOSTIGMINE (PYRIDOSTIGMINE) [Concomitant]
  6. BECLOMETHASONE DIPROPIONATE [Concomitant]
  7. LANSOPRAZOLE [Concomitant]
  8. PREDNISOLONE [Concomitant]
  9. ADCAL-D3 (LEKOVIT CA) [Concomitant]
  10. ALENDRONATE SODIUM [Concomitant]
  11. PRIVIGEN [Suspect]
     Indication: MYASTHENIA GRAVIS
     Dosage: 30 G QD, INTRAVENOUS (NOT OTHERWISE SPECIFIED)
     Route: 042
     Dates: start: 20110727, end: 20110731

REACTIONS (12)
  - RENAL FAILURE ACUTE [None]
  - DEEP VEIN THROMBOSIS [None]
  - FLUSHING [None]
  - NITRITE URINE PRESENT [None]
  - INTRAVASCULAR HAEMOLYSIS [None]
  - HYPOTENSION [None]
  - NAUSEA [None]
  - RASH [None]
  - DYSURIA [None]
  - CHROMATURIA [None]
  - JAUNDICE [None]
  - ABDOMINAL DISCOMFORT [None]
